FAERS Safety Report 24706968 (Version 2)
Quarter: 2024Q4

REPORT INFORMATION
  Report Type: Spontaneous
  Country: US (occurrence: US)
  Receive Date: 20241206
  Receipt Date: 20241216
  Transmission Date: 20250114
  Serious: No
  Sender: PFIZER
  Company Number: US-PFIZER INC-202400316050

PATIENT
  Age: 83 Year
  Sex: Female
  Weight: 67.59 kg

DRUGS (1)
  1. LORBRENA [Suspect]
     Active Substance: LORLATINIB
     Indication: Lung neoplasm malignant
     Dosage: 50 MG, 1X/DAY
     Route: 048
     Dates: start: 20240531

REACTIONS (1)
  - Neoplasm progression [Unknown]
